FAERS Safety Report 13637097 (Version 1)
Quarter: 2017Q2

REPORT INFORMATION
  Report Type: Spontaneous
  Country: FR (occurrence: FR)
  Receive Date: 20170609
  Receipt Date: 20170609
  Transmission Date: 20170830
  Serious: Yes (Hospitalization)
  Sender: FDA-Public Use
  Company Number: FR-PFIZER INC-2017242721

PATIENT
  Age: 48 Year
  Sex: Male

DRUGS (11)
  1. SIMVASTATIN. [Concomitant]
     Active Substance: SIMVASTATIN
     Dosage: UNK
  2. XANAX [Suspect]
     Active Substance: ALPRAZOLAM
     Dosage: 0.5 MG, UNK
     Route: 048
  3. STILNOX [Suspect]
     Active Substance: ZOLPIDEM TARTRATE
     Dosage: 14 DF, SINGLE
     Route: 048
     Dates: start: 20170510, end: 20170510
  4. TERCIAN [Concomitant]
     Active Substance: CYAMEMAZINE
     Dosage: 100 MG, 3X/DAY IN THE MORNING, AT NOON AND IN THE EVENING
  5. AMLOR [Concomitant]
     Active Substance: AMLODIPINE BESYLATE
     Dosage: UNK
  6. EZETROL [Concomitant]
     Active Substance: EZETIMIBE
     Dosage: UNK
  7. XANAX [Suspect]
     Active Substance: ALPRAZOLAM
     Dosage: 20 DF, SINGLE
     Route: 048
     Dates: start: 20170510, end: 20170510
  8. STILNOX [Suspect]
     Active Substance: ZOLPIDEM TARTRATE
     Dosage: 2 DF, 1X/DAY IN THE EVENING
     Route: 048
  9. RAMIPRIL. [Concomitant]
     Active Substance: RAMIPRIL
     Dosage: UNK
  10. METFORMIN [Concomitant]
     Active Substance: METFORMIN HYDROCHLORIDE
     Dosage: UNK
  11. INEXIUM [Concomitant]
     Active Substance: ESOMEPRAZOLE
     Dosage: 40 MG, DAILY

REACTIONS (3)
  - Intentional overdose [Unknown]
  - Oxygen saturation decreased [Unknown]
  - Altered state of consciousness [Recovered/Resolved]

NARRATIVE: CASE EVENT DATE: 20170510
